FAERS Safety Report 4687442-4 (Version None)
Quarter: 2005Q2

REPORT INFORMATION
  Report Type: 
  Country: None (occurrence: None)
  Receive Date: 20050610
  Receipt Date: 20050529
  Transmission Date: 20051028
  Serious: Yes (Death)
  Sender: FDA-Public Use
  Company Number: IL-JNJFOC-20050601291

PATIENT
  Age: 79 Year
  Sex: Male

DRUGS (14)
  1. NESIRITIDE [Suspect]
     Route: 042
  2. POTASSIUM SULPHATE [Concomitant]
     Route: 065
  3. FRUSEMIDE [Concomitant]
     Route: 065
  4. DIGOXIN [Concomitant]
     Route: 065
  5. SPIRONOLACTONE [Concomitant]
     Route: 065
  6. WARFARIN SODIUM [Concomitant]
     Route: 065
  7. CARVEDILOL [Concomitant]
     Route: 065
  8. CILAZAPRIL [Concomitant]
     Route: 065
  9. GLIBENCLAMIDE [Concomitant]
     Route: 065
  10. METFORMIN HCL [Concomitant]
     Route: 065
  11. DIURETIC [Concomitant]
     Route: 065
  12. VASODILATOR [Concomitant]
     Route: 065
  13. ACE INHIBITOR [Concomitant]
     Route: 065
  14. POTASSIUM SALT [Concomitant]
     Route: 065

REACTIONS (3)
  - CARDIOGENIC SHOCK [None]
  - CONDITION AGGRAVATED [None]
  - DRUG INTERACTION [None]
